FAERS Safety Report 7685496-4 (Version None)
Quarter: 2011Q3

REPORT INFORMATION
  Report Type: 
  Country: None (occurrence: None)
  Receive Date: 20110816
  Receipt Date: 20110804
  Transmission Date: 20111222
  Serious: Yes (Hospitalization, Other)
  Sender: FDA-Public Use
  Company Number: US-ELI_LILLY_AND_COMPANY-US201104004032

PATIENT
  Sex: Female

DRUGS (11)
  1. FORTEO [Suspect]
     Indication: OSTEOPOROSIS
     Dosage: 20 UG, QD
     Dates: start: 20110407, end: 20110422
  2. MAGNESIUM [Concomitant]
  3. XALATAN [Concomitant]
     Indication: EYE DISORDER
  4. CALCIUM CARBONATE [Concomitant]
  5. METOPROLOL TARTRATE [Concomitant]
  6. ACETAMINOPHEN AND HYDROCODONE BITARTRATE [Concomitant]
  7. CENTRUM [Concomitant]
  8. AMLODIPINE [Concomitant]
  9. ASPIRIN [Concomitant]
     Dosage: 325 MG, UNK
  10. REQUIP [Concomitant]
  11. LUTEIN [Concomitant]
     Indication: EYE DISORDER

REACTIONS (8)
  - DYSARTHRIA [None]
  - HEMIPARESIS [None]
  - VIITH NERVE PARALYSIS [None]
  - COUGH [None]
  - CEREBROVASCULAR ACCIDENT [None]
  - INJECTION SITE ERYTHEMA [None]
  - GAIT DISTURBANCE [None]
  - DYSPHONIA [None]
